FAERS Safety Report 4356527-4 (Version None)
Quarter: 2004Q2

REPORT INFORMATION
  Report Type: 
  Country: None (occurrence: None)
  Receive Date: 20040510
  Receipt Date: 20040510
  Transmission Date: 20050107
  Serious: Yes (Life-Threatening)
  Sender: FDA-Public Use
  Company Number: None

PATIENT
  Age: 80 Year
  Sex: Female
  Weight: 70 kg

DRUGS (4)
  1. GEFITINIB 250 MG ASTRA ZENECA [Suspect]
     Indication: NON-SMALL CELL LUNG CANCER RECURRENT
     Dosage: 250 MG DAILY ORAL
     Route: 048
     Dates: start: 20031023, end: 20031212
  2. DECADRON [Concomitant]
  3. COUMADIN [Concomitant]
  4. DUONEB NEBULIZER [Concomitant]

REACTIONS (6)
  - ALANINE AMINOTRANSFERASE INCREASED [None]
  - ASPARTATE AMINOTRANSFERASE INCREASED [None]
  - FATIGUE [None]
  - LETHARGY [None]
  - OEDEMA PERIPHERAL [None]
  - PNEUMONITIS [None]
